FAERS Safety Report 9887795 (Version 1)
Quarter: 2014Q1

REPORT INFORMATION
  Report Type: Spontaneous
  Country: GB (occurrence: GB)
  Receive Date: 20140211
  Receipt Date: 20140211
  Transmission Date: 20141002
  Serious: Yes (Hospitalization)
  Sender: FDA-Public Use
  Company Number: GB-UCBSA-111399

PATIENT
  Age: 74 Year
  Sex: Female

DRUGS (2)
  1. CIMZIA [Suspect]
     Indication: RHEUMATOID ARTHRITIS
     Route: 058
     Dates: start: 20131216, end: 20140106
  2. NO CONCOMITANT MEDICATION [Concomitant]

REACTIONS (5)
  - Loss of consciousness [Recovering/Resolving]
  - Oral discomfort [Recovering/Resolving]
  - Dysgeusia [Recovering/Resolving]
  - Gingival pain [Recovering/Resolving]
  - Asthenia [Recovering/Resolving]
